FAERS Safety Report 5225061-1 (Version None)
Quarter: 2007Q1

REPORT INFORMATION
  Report Type: 
  Country: None (occurrence: None)
  Receive Date: 20070131
  Receipt Date: 20070123
  Transmission Date: 20070707
  Serious: Yes (Other)
  Sender: FDA-Public Use
  Company Number: IE-GLAXOSMITHKLINE-B0456358A

PATIENT
  Age: 70 Year
  Sex: Female

DRUGS (2)
  1. PANADOL [Suspect]
     Indication: PAIN
     Route: 065
  2. PERINDOPRIL ERBUMINE [Concomitant]
     Route: 065

REACTIONS (1)
  - TACHYCARDIA [None]
